FAERS Safety Report 13196690 (Version 2)
Quarter: 2024Q2

REPORT INFORMATION
  Report Type: Report from Study
  Country: US (occurrence: US)
  Receive Date: 20170208
  Receipt Date: 20240627
  Transmission Date: 20240715
  Serious: No
  Sender: FDA-Public Use
  Company Number: US-JNJFOC-20170205872

PATIENT
  Age: 69 Year
  Sex: Female

DRUGS (7)
  1. STELARA [Suspect]
     Active Substance: USTEKINUMAB
     Indication: Psoriasis
     Route: 058
     Dates: start: 20151110, end: 20151110
  2. STELARA [Suspect]
     Active Substance: USTEKINUMAB
     Route: 058
     Dates: start: 20160128, end: 20160128
  3. STELARA [Suspect]
     Active Substance: USTEKINUMAB
     Route: 058
     Dates: start: 20160426, end: 20160426
  4. STELARA [Suspect]
     Active Substance: USTEKINUMAB
     Route: 058
     Dates: start: 20160721, end: 20161025
  5. STELARA [Suspect]
     Active Substance: USTEKINUMAB
     Route: 058
     Dates: end: 20170131
  6. STELARA [Suspect]
     Active Substance: USTEKINUMAB
     Route: 058
     Dates: start: 20160721, end: 20170808
  7. STELARA [Suspect]
     Active Substance: USTEKINUMAB
     Route: 058
     Dates: start: 20140225, end: 20170808

REACTIONS (3)
  - Bacterial vaginosis [Unknown]
  - Urticaria [Unknown]
  - Upper respiratory tract infection [Unknown]

NARRATIVE: CASE EVENT DATE: 20160810
